FAERS Safety Report 9452614 (Version 1)
Quarter: 2013Q3

REPORT INFORMATION
  Report Type: Spontaneous
  Country: US (occurrence: US)
  Receive Date: 20130812
  Receipt Date: 20130812
  Transmission Date: 20140515
  Serious: No
  Sender: FDA-Public Use
  Company Number: US-PFIZER INC-2013233016

PATIENT
  Age: 51 Year
  Sex: Female
  Weight: 70.3 kg

DRUGS (1)
  1. ZYVOX [Suspect]
     Indication: DERMATITIS
     Dosage: 600 MG, 2X/DAY
     Route: 048
     Dates: start: 20130802

REACTIONS (3)
  - Back pain [Not Recovered/Not Resolved]
  - Chest pain [Unknown]
  - Abdominal pain upper [Unknown]
